FAERS Safety Report 8137311-2 (Version None)
Quarter: 2012Q1

REPORT INFORMATION
  Report Type: 
  Country: None (occurrence: None)
  Receive Date: 20120210
  Receipt Date: 20120202
  Transmission Date: 20120608
  Serious: Yes (Other)
  Sender: FDA-Public Use
  Company Number: DKLU1076533

PATIENT
  Age: 3 Year
  Sex: Female

DRUGS (4)
  1. ELSPAR [Suspect]
     Indication: ACUTE LYMPHOCYTIC LEUKAEMIA
     Dosage: 10000 U/M2 ON DAYS 8, 9, 15, 16, 22, 23 SUBCUTANEOUS
     Route: 058
  2. DEXAMETHASONE [Suspect]
     Indication: ACUTE LYMPHOCYTIC LEUKAEMIA
     Dosage: 6 MG/M2 MILLIGRAM(S)/SQ.METER, ON DAYS 1-14
  3. VINCRISTINE [Suspect]
     Indication: ACUTE LYMPHOCYTIC LEUKAEMIA
     Dosage: 1.5 MG/M2 MILLIGRAM(S)/SQ.METER, ON DAYS 1, 8, AND 15
  4. DOXORUBICIN HCL [Suspect]
     Indication: ACUTE LYMPHOCYTIC LEUKAEMIA
     Dosage: 25 MG/M2 MILLIGRAM(S)/SQ.METER, ON DAYS 1, 8, AND 15

REACTIONS (17)
  - VISUAL IMPAIRMENT [None]
  - SHOCK [None]
  - INTERSTITIAL LUNG DISEASE [None]
  - CEREBRAL ATROPHY [None]
  - GASTRIC ULCER HAEMORRHAGE [None]
  - HEPATITIS [None]
  - BLINDNESS [None]
  - RASH VESICULAR [None]
  - CONFUSIONAL STATE [None]
  - NECROSIS [None]
  - EYE DISORDER [None]
  - EYE INFECTION SYPHILITIC [None]
  - NERVOUS SYSTEM DISORDER [None]
  - OESOPHAGEAL ULCER HAEMORRHAGE [None]
  - CONVULSION [None]
  - ENCEPHALITIS HERPES [None]
  - RETINAL DISORDER [None]
